FAERS Safety Report 19057117 (Version 1)
Quarter: 2021Q1

REPORT INFORMATION
  Report Type: Spontaneous
  Country: US (occurrence: US)
  Receive Date: 20210324
  Receipt Date: 20210324
  Transmission Date: 20210420
  Serious: No
  Sender: FDA-Public Use
  Company Number: US-HISAMITSU-2020-US-012285

PATIENT
  Age: 73 Year
  Sex: Female
  Weight: 74.84 kg

DRUGS (7)
  1. AMLODIPINE 2.5MG [Concomitant]
     Active Substance: AMLODIPINE BESYLATE
  2. MULTIVITAMIN [Concomitant]
     Active Substance: VITAMINS
  3. SALONPAS PAIN RELIEF [Suspect]
     Active Substance: MENTHOL\METHYL SALICYLATE
     Indication: ANALGESIC THERAPY
     Dosage: ONE PATCH TO LOWER BACK ONE TIME
     Route: 061
     Dates: start: 20200615, end: 20200615
  4. OMEPRAZOLE. [Concomitant]
     Active Substance: OMEPRAZOLE
  5. FISH OIL [Concomitant]
     Active Substance: FISH OIL
  6. VITAMIN E [Concomitant]
     Active Substance: .ALPHA.-TOCOPHEROL
  7. MAGNESIUM GLUCONATE [Concomitant]
     Active Substance: MAGNESIUM GLUCONATE

REACTIONS (2)
  - Application site rash [Recovering/Resolving]
  - Application site vesicles [Recovered/Resolved]

NARRATIVE: CASE EVENT DATE: 20200615
